FAERS Safety Report 6213816-6 (Version None)
Quarter: 2009Q2

REPORT INFORMATION
  Report Type: 
  Country: None (occurrence: None)
  Receive Date: 20090602
  Receipt Date: 20090527
  Transmission Date: 20091009
  Serious: Yes (Death, Other)
  Sender: FDA-Public Use
  Company Number: 2009US001949

PATIENT

DRUGS (3)
  1. PROGRAF [Suspect]
     Indication: HEART TRANSPLANT
  2. AZATHIOPRINE [Suspect]
     Indication: HEART TRANSPLANT
  3. PREDNISONE TAB [Suspect]
     Indication: HEART TRANSPLANT

REACTIONS (3)
  - COMPLICATIONS OF TRANSPLANTED HEART [None]
  - KLEBSIELLA SEPSIS [None]
  - STRONGYLOIDIASIS [None]
